FAERS Safety Report 7311722-7 (Version None)
Quarter: 2011Q1

REPORT INFORMATION
  Report Type: 
  Country: None (occurrence: None)
  Receive Date: 20110224
  Receipt Date: 20110218
  Transmission Date: 20110831
  Serious: Yes (Hospitalization, Disabling, Other)
  Sender: FDA-Public Use
  Company Number: US-MERCK-1101USA00635

PATIENT
  Age: 66 Year
  Sex: Female
  Weight: 78 kg

DRUGS (14)
  1. CALCIUM (UNSPECIFIED) [Concomitant]
     Route: 065
  2. MYSOLINE [Concomitant]
     Route: 065
  3. CHOLECALCIFEROL [Concomitant]
     Route: 065
  4. OXYBUTYNIN [Concomitant]
     Route: 065
  5. NEXIUM [Concomitant]
     Route: 065
  6. LEVOTHYROXINE SODIUM [Concomitant]
     Route: 065
  7. NORVASC [Concomitant]
     Route: 065
  8. FOSAMAX [Suspect]
     Indication: OSTEOPOROSIS
     Route: 048
     Dates: start: 20050101, end: 20100601
  9. VOLTAREN [Concomitant]
     Route: 065
  10. ASPIRIN [Concomitant]
     Route: 065
  11. NABUMETONE [Concomitant]
     Route: 065
  12. CHOLECALCIFEROL [Concomitant]
     Route: 065
  13. CITALOPRAM [Concomitant]
     Route: 065
  14. CRESTOR [Concomitant]
     Route: 065

REACTIONS (2)
  - FEMUR FRACTURE [None]
  - FLANK PAIN [None]
